FAERS Safety Report 16110668 (Version 1)
Quarter: 2019Q1

REPORT INFORMATION
  Report Type: Spontaneous
  Country: FR (occurrence: FR)
  Receive Date: 20190325
  Receipt Date: 20190325
  Transmission Date: 20190418
  Serious: Yes (Hospitalization)
  Sender: FDA-Public Use
  Company Number: PHHY2019FR065701

PATIENT
  Age: 25 Year
  Sex: Male

DRUGS (5)
  1. THERALENE [Suspect]
     Active Substance: TRIMEPRAZINE
     Indication: POISONING DELIBERATE
     Dosage: 70 MG, UNK
     Route: 048
  2. PARACETAMOL [Suspect]
     Active Substance: ACETAMINOPHEN
     Indication: POISONING DELIBERATE
     Dosage: 2.5 G, TOTAL
     Route: 048
     Dates: start: 20190221, end: 20190221
  3. PAROXETIN ACTAVIS [Suspect]
     Active Substance: PAROXETINE HYDROCHLORIDE
     Indication: POISONING DELIBERATE
     Dosage: 20 MG, TOTAL
     Route: 048
     Dates: start: 20190221, end: 20190221
  4. ALPRAZOLAM. [Suspect]
     Active Substance: ALPRAZOLAM
     Indication: POISONING DELIBERATE
     Dosage: 2 MG, TOTAL
     Route: 048
     Dates: start: 20190221, end: 20190221
  5. TERCIAN [Suspect]
     Active Substance: CYAMEMAZINE
     Indication: POISONING DELIBERATE
     Dosage: 1 G, UNK
     Route: 048

REACTIONS (3)
  - Miosis [Not Recovered/Not Resolved]
  - Hypotension [Not Recovered/Not Resolved]
  - Coma [Not Recovered/Not Resolved]

NARRATIVE: CASE EVENT DATE: 20190221
